FAERS Safety Report 23703731 (Version 2)
Quarter: 2024Q2

REPORT INFORMATION
  Report Type: Report from Study
  Country: US (occurrence: US)
  Receive Date: 20240403
  Receipt Date: 20240416
  Transmission Date: 20240716
  Serious: Yes (Hospitalization, Other)
  Sender: FDA-Public Use
  Company Number: US-OTSUKA-2023_028202

PATIENT
  Sex: Female

DRUGS (1)
  1. TOLVAPTAN [Suspect]
     Active Substance: TOLVAPTAN
     Indication: Congenital cystic kidney disease
     Dosage: UNK
     Route: 065

REACTIONS (10)
  - Kidney infection [Unknown]
  - Polypectomy [Unknown]
  - Polyp [Unknown]
  - Endometriosis [Unknown]
  - Uterine dilation and curettage [Unknown]
  - Menstrual disorder [Unknown]
  - Dysmenorrhoea [Unknown]
  - Haematuria [Unknown]
  - Nausea [Unknown]
  - Decreased appetite [Unknown]

NARRATIVE: CASE EVENT DATE: 20231001
